FAERS Safety Report 25943629 (Version 1)
Quarter: 2025Q4

REPORT INFORMATION
  Report Type: Spontaneous
  Country: US (occurrence: US)
  Receive Date: 20251021
  Receipt Date: 20251021
  Transmission Date: 20260118
  Serious: Yes (Hospitalization, Other)
  Sender: SUNOVION
  Company Number: US-SMPA-2025SPA013412

PATIENT
  Age: 71 Year
  Sex: Male

DRUGS (9)
  1. ORGOVYX [Suspect]
     Active Substance: RELUGOLIX
     Indication: Prostate cancer
     Dosage: 360 MG, SINGLE
     Route: 048
     Dates: start: 20221026, end: 20221026
  2. ORGOVYX [Suspect]
     Active Substance: RELUGOLIX
     Dosage: 120 MG, QD
     Route: 048
  3. LIPITOR [Suspect]
     Active Substance: ATORVASTATIN CALCIUM
     Indication: Cerebrovascular accident
     Dosage: UNK
  4. ASPIRIN [Concomitant]
     Active Substance: ASPIRIN
     Dosage: UNK
  5. CLOPIDOGREL [Concomitant]
     Active Substance: CLOPIDOGREL BISULFATE
     Dosage: UNK
  6. LISINOPRIL [Concomitant]
     Active Substance: LISINOPRIL
     Dosage: UNK
  7. METFORMIN [Concomitant]
     Active Substance: METFORMIN HYDROCHLORIDE
     Dosage: UNK
  8. MINERALS [Concomitant]
     Active Substance: MINERALS
     Dosage: UNK
  9. XTANDI [Concomitant]
     Active Substance: ENZALUTAMIDE
     Dosage: UNK

REACTIONS (2)
  - Cerebrovascular accident [Unknown]
  - Bone pain [Unknown]

NARRATIVE: CASE EVENT DATE: 20250301
